FAERS Safety Report 16376345 (Version 2)
Quarter: 2019Q3

REPORT INFORMATION
  Report Type: Spontaneous
  Country: CA (occurrence: CA)
  Receive Date: 20190531
  Receipt Date: 20190731
  Transmission Date: 20191004
  Serious: Yes (Other)
  Sender: FDA-Public Use
  Company Number: CA-CELLTRION INC.-2019CA021092

PATIENT

DRUGS (3)
  1. INFLECTRA [Suspect]
     Active Substance: INFLIXIMAB-DYYB
     Indication: RHEUMATOID ARTHRITIS
     Dosage: 300 MG, (EVERY 0, 2 6 WEEKS, THEN EVERY 8 WEEKS)
     Route: 042
     Dates: start: 20190314
  2. METHOTREXATE. [Concomitant]
     Active Substance: METHOTREXATE
     Dosage: 10 MG, WEEKLY (HEPATIC DOSING)
     Route: 048
     Dates: start: 2019
  3. INFLECTRA [Suspect]
     Active Substance: INFLIXIMAB-DYYB
     Dosage: 300 MG, (EVERY 0, 2 6 WEEKS, THEN EVERY 8 WEEKS)
     Route: 042
     Dates: start: 20190328

REACTIONS (8)
  - Lower respiratory tract infection [Not Recovered/Not Resolved]
  - Sinus congestion [Not Recovered/Not Resolved]
  - Lower respiratory tract congestion [Not Recovered/Not Resolved]
  - Odynophagia [Unknown]
  - Malaise [Unknown]
  - Skin warm [Unknown]
  - Productive cough [Unknown]
  - Oropharyngeal pain [Unknown]
